FAERS Safety Report 5106094-2 (Version None)
Quarter: 2006Q3

REPORT INFORMATION
  Report Type: 
  Country: None (occurrence: None)
  Receive Date: 20060912
  Receipt Date: 20060828
  Transmission Date: 20061208
  Serious: Yes (Hospitalization)
  Sender: FDA-Public Use
  Company Number: 0608-588

PATIENT
  Age: 74 Year
  Sex: Male
  Weight: 64.8644 kg

DRUGS (3)
  1. DUONEB [Suspect]
     Indication: CHRONIC OBSTRUCTIVE PULMONARY DISEASE
     Dosage: 1 VIAL 4X DAILY-INHALATION
     Route: 055
  2. SPIRIVA [Concomitant]
  3. ADVAIR DISKUS 100/50 [Concomitant]

REACTIONS (8)
  - CHRONIC OBSTRUCTIVE PULMONARY DISEASE [None]
  - CONDITION AGGRAVATED [None]
  - GUILLAIN-BARRE SYNDROME [None]
  - LUNG INFECTION [None]
  - NOSOCOMIAL INFECTION [None]
  - PNEUMONIA [None]
  - SINUSITIS [None]
  - STAPHYLOCOCCAL INFECTION [None]
